FAERS Safety Report 6640775-4 (Version None)
Quarter: 2010Q1

REPORT INFORMATION
  Report Type: 
  Country: None (occurrence: None)
  Receive Date: 20100318
  Receipt Date: 20100309
  Transmission Date: 20100710
  Serious: Yes (Other)
  Sender: FDA-Public Use
  Company Number: GB-PFIZER INC-2010014366

PATIENT
  Age: 40 Year
  Sex: Male
  Weight: 79.4 kg

DRUGS (1)
  1. LIPITOR [Suspect]
     Indication: TYPE IIA HYPERLIPIDAEMIA
     Dosage: 40 MG, 1X/DAY
     Route: 048
     Dates: start: 20091101

REACTIONS (1)
  - BLOOD BILIRUBIN INCREASED [None]
